FAERS Safety Report 12456764 (Version 1)
Quarter: 2016Q2

REPORT INFORMATION
  Report Type: Spontaneous
  Country: BR (occurrence: BR)
  Receive Date: 20160610
  Receipt Date: 20160610
  Transmission Date: 20160815
  Serious: Yes (Other)
  Sender: FDA-Public Use
  Company Number: BR-PFIZER INC-2016285265

PATIENT
  Age: 72 Year
  Sex: Female
  Weight: 49 kg

DRUGS (4)
  1. TRAVATAN [Suspect]
     Active Substance: TRAVOPROST
     Indication: GLAUCOMA
     Dosage: UNK
     Dates: start: 2014
  2. EUTIROX [Concomitant]
     Active Substance: LEVOTHYROXINE SODIUM
     Indication: THYROID DISORDER
     Dosage: 1 TABLET OF 50 MG DAILY
     Route: 048
     Dates: start: 2006
  3. XALATAN [Suspect]
     Active Substance: LATANOPROST
     Indication: GLAUCOMA
     Dosage: 1 DROP IN BOTH EYES DAILY
     Route: 047
     Dates: start: 2013, end: 2014
  4. LOSARTAN. [Concomitant]
     Active Substance: LOSARTAN
     Indication: HYPERTENSION
     Dosage: 1 TABLET DAILY
     Route: 048
     Dates: start: 2013

REACTIONS (1)
  - Deafness [Not Recovered/Not Resolved]
